FAERS Safety Report 5520624-8 (Version None)
Quarter: 2007Q4

REPORT INFORMATION
  Report Type: 
  Country: None (occurrence: None)
  Receive Date: 20071119
  Receipt Date: 20071107
  Transmission Date: 20080405
  Serious: Yes (Other)
  Sender: FDA-Public Use
  Company Number: US-PFIZER INC-2007093782

PATIENT
  Sex: Female
  Weight: 54 kg

DRUGS (13)
  1. CELEBREX [Suspect]
     Indication: ARTHRITIS
     Route: 048
  2. CELEBREX [Suspect]
     Indication: ROTATOR CUFF SYNDROME
  3. CELEBREX [Suspect]
     Indication: CARDIAC DISORDER
  4. NORVASC [Concomitant]
  5. ATENOLOL [Concomitant]
  6. BUMEX [Concomitant]
  7. PREMARIN [Concomitant]
  8. MICRO-K [Concomitant]
  9. LANOXIN [Concomitant]
  10. PROZAC [Concomitant]
  11. VITAMIN B-12 [Concomitant]
  12. HYDROCODONE BITARTRATE [Concomitant]
  13. ANTICOAGULANTS [Concomitant]
     Dosage: DAILY DOSE:3MG

REACTIONS (2)
  - ASTHMA [None]
  - DRUG INEFFECTIVE [None]
